FAERS Safety Report 18626962 (Version 1)
Quarter: 2020Q4

REPORT INFORMATION
  Report Type: Spontaneous
  Country: ES (occurrence: ES)
  Receive Date: 20201217
  Receipt Date: 20201217
  Transmission Date: 20210114
  Serious: Yes (Other)
  Sender: FDA-Public Use
  Company Number: ES-ASTRAZENECA-2020SF64505

PATIENT
  Age: 52 Year
  Sex: Male

DRUGS (4)
  1. CRESTOR [Suspect]
     Active Substance: ROSUVASTATIN CALCIUM
     Indication: DYSLIPIDAEMIA
     Route: 048
     Dates: start: 20200617, end: 20201112
  2. CHAMPIX [Concomitant]
     Active Substance: VARENICLINE TARTRATE
  3. VIVACE [Concomitant]
     Dosage: 30 MG/ 10 MG
  4. OMEPRAZOLE. [Concomitant]
     Active Substance: OMEPRAZOLE

REACTIONS (2)
  - Myalgia [Unknown]
  - Liver disorder [Unknown]

NARRATIVE: CASE EVENT DATE: 20201101
